FAERS Safety Report 7314032-7 (Version None)
Quarter: 2011Q1

REPORT INFORMATION
  Report Type: 
  Country: None (occurrence: None)
  Receive Date: 20110215
  Receipt Date: 20110125
  Transmission Date: 20110831
  Serious: Yes (Other)
  Sender: FDA-Public Use
  Company Number: 20110078

PATIENT
  Sex: Female
  Weight: 58.0604 kg

DRUGS (4)
  1. LIDOCAINE 2% WITHOUT EPINEPHRINE [Concomitant]
  2. SALINE SOLUTION 0.9% [Concomitant]
  3. SODIUM BICARBONATE [Suspect]
     Indication: LIPOSUCTION
     Dosage: 40 MEQ IN SALINE SOLUTION SUBCUTANEOUS
     Route: 058
     Dates: start: 20100504, end: 20100504
  4. EPINEPHRINE [Concomitant]

REACTIONS (5)
  - NO THERAPEUTIC RESPONSE [None]
  - PRODUCT QUALITY ISSUE [None]
  - GRANULOMA [None]
  - SCAR [None]
  - ERYTHEMA [None]
